FAERS Safety Report 6988528-1 (Version None)
Quarter: 2010Q3

REPORT INFORMATION
  Report Type: 
  Country: None (occurrence: None)
  Receive Date: 20100916
  Receipt Date: 20100907
  Transmission Date: 20110219
  Serious: Yes (Death)
  Sender: FDA-Public Use
  Company Number: IN-PFIZER INC-2010113249

PATIENT
  Sex: Male
  Weight: 68 kg

DRUGS (2)
  1. ERAXIS [Suspect]
     Indication: CANDIDIASIS
     Dosage: 100 MG, 1X/DAY
     Route: 042
  2. COLISTIN [Concomitant]
     Dosage: 1 ML, 4X/DAY

REACTIONS (2)
  - SEPTIC SHOCK [None]
  - THROMBOCYTOPENIA [None]
